FAERS Safety Report 9165315 (Version 1)
Quarter: 2013Q1

REPORT INFORMATION
  Report Type: Report from Study
  Country: DE (occurrence: DE)
  Receive Date: 20130315
  Receipt Date: 20130315
  Transmission Date: 20140127
  Serious: Yes (Death, Hospitalization, Other)
  Sender: FDA-Public Use
  Company Number: DE-ASTELLAS-2013EU002214

PATIENT
  Sex: Male
  Weight: 72 kg

DRUGS (1)
  1. ENZALUTAMIDE [Suspect]
     Indication: PROSTATE CANCER
     Dosage: 160 MG, UID/QD
     Route: 048
     Dates: start: 20120810, end: 20130107

REACTIONS (7)
  - Death [Fatal]
  - Metastases to bone [Recovering/Resolving]
  - General physical health deterioration [Unknown]
  - Depression [Unknown]
  - Spinal fracture [Unknown]
  - Joint instability [Unknown]
  - Nausea [Unknown]
